FAERS Safety Report 25627709 (Version 2)
Quarter: 2025Q3

REPORT INFORMATION
  Report Type: Report from Study
  Country: US (occurrence: US)
  Receive Date: 20250731
  Receipt Date: 20250901
  Transmission Date: 20251020
  Serious: No
  Sender: SUNOVION
  Company Number: US-SUMITOMO PHARMA SWITZERLAND GMBH-2025SPA009409

PATIENT
  Age: 76 Year
  Sex: Male

DRUGS (6)
  1. ORGOVYX [Suspect]
     Active Substance: RELUGOLIX
     Indication: Prostate cancer
     Route: 048
  2. ORGOVYX [Suspect]
     Active Substance: RELUGOLIX
     Route: 048
  3. ASPIRIN [Concomitant]
     Active Substance: ASPIRIN
  4. DICLOFENAC [Concomitant]
     Active Substance: DICLOFENAC
  5. LISINOPRIL [Concomitant]
     Active Substance: LISINOPRIL
  6. TYLENOL [Concomitant]
     Active Substance: ACETAMINOPHEN

REACTIONS (4)
  - Muscle discomfort [Unknown]
  - Pain [Unknown]
  - Haemoglobin decreased [Unknown]
  - Therapy interrupted [Recovered/Resolved]
